FAERS Safety Report 13386680 (Version 1)
Quarter: 2017Q1

REPORT INFORMATION
  Report Type: Spontaneous
  Country: US (occurrence: US)
  Receive Date: 20170330
  Receipt Date: 20170330
  Transmission Date: 20170429
  Serious: No
  Sender: FDA-Public Use
  Company Number: US-PFIZER INC-2017133428

PATIENT
  Age: 67 Year
  Sex: Female
  Weight: 70.3 kg

DRUGS (5)
  1. ESCITALOPRAM OXALATE. [Concomitant]
     Active Substance: ESCITALOPRAM OXALATE
     Indication: NERVE INJURY
     Dosage: UNK
  2. CODEINE SULFATE. [Concomitant]
     Active Substance: CODEINE SULFATE
     Indication: CERVICAL SPINAL STENOSIS
     Dosage: 60 MG, UNK
  3. METAXALONE. [Suspect]
     Active Substance: METAXALONE
     Indication: CERVICAL SPINAL STENOSIS
     Dosage: 800 MG, 4X/DAY (EVERY 6 HOURS)
     Route: 048
  4. EPIPEN [Concomitant]
     Active Substance: EPINEPHRINE
     Indication: HYPERSENSITIVITY
     Dosage: UNK UNK, AS NEEDED
  5. BENADRYL [Concomitant]
     Active Substance: DIPHENHYDRAMINE HYDROCHLORIDE
     Indication: HYPERSENSITIVITY
     Dosage: UNK UNK, AS NEEDED

REACTIONS (4)
  - Pruritus [Recovered/Resolved with Sequelae]
  - Condition aggravated [Recovered/Resolved with Sequelae]
  - Tinnitus [Recovered/Resolved with Sequelae]
  - Product use issue [Not Recovered/Not Resolved]
